FAERS Safety Report 18887826 (Version 1)
Quarter: 2021Q1

REPORT INFORMATION
  Report Type: Spontaneous
  Country: RU (occurrence: RU)
  Receive Date: 20210212
  Receipt Date: 20210212
  Transmission Date: 20210420
  Serious: Yes (Other)
  Sender: FDA-Public Use
  Company Number: RU-ASTRAZENECA-2021A038518

PATIENT
  Age: 66 Year
  Sex: Female

DRUGS (3)
  1. TIOTROPIUM BROMIDE [Concomitant]
     Active Substance: TIOTROPIUM BROMIDE
     Route: 065
  2. OMALIZUMAB. [Concomitant]
     Active Substance: OMALIZUMAB
     Route: 065
  3. BUDESONIDE / FORMOTEROL [Suspect]
     Active Substance: BUDESONIDE\FORMOTEROL
     Indication: ASTHMA
     Dosage: 160/4.5 MCG 2 DOSES 2 TIMES A DAY
     Route: 055

REACTIONS (3)
  - Coronavirus infection [Unknown]
  - Pneumonia viral [Unknown]
  - Asthma [Unknown]
